FAERS Safety Report 7417263-0 (Version None)
Quarter: 2011Q2

REPORT INFORMATION
  Report Type: 
  Country: None (occurrence: None)
  Receive Date: 20110415
  Receipt Date: 20110404
  Transmission Date: 20111010
  Serious: Yes (Congenital Anomaly)
  Sender: FDA-Public Use
  Company Number: US-KINGPHARMUSA00001-K201100397

PATIENT
  Sex: Male
  Weight: 2.75 kg

DRUGS (2)
  1. PROPYLTHIOURACIL [Suspect]
     Indication: HYPERTHYROIDISM
     Dosage: 50 MG, DAILY
     Route: 064
  2. TAPAZOLE [Suspect]
     Indication: HYPERTHYROIDISM
     Dosage: 15 MG, DAILY
     Route: 064

REACTIONS (9)
  - CONGENITAL EYELID MALFORMATION [None]
  - OESOPHAGEAL ATRESIA [None]
  - TRACHEO-OESOPHAGEAL FISTULA [None]
  - DEAFNESS UNILATERAL [None]
  - APLASIA CUTIS CONGENITA [None]
  - MICROTIA [None]
  - DELAYED FONTANELLE CLOSURE [None]
  - CLINODACTYLY [None]
  - DEVELOPMENTAL DELAY [None]
